FAERS Safety Report 8839691 (Version 3)
Quarter: 2012Q4

REPORT INFORMATION
  Report Type: 
  Country: CN (occurrence: CN)
  Receive Date: 20121015
  Receipt Date: 20121212
  Transmission Date: 20130627
  Serious: Yes (Hospitalization, Disabling, Other)
  Sender: FDA-Public Use
  Company Number: PHHY2012CN090707

PATIENT
  Age: 74 Year
  Sex: Female
  Weight: 61 kg

DRUGS (2)
  1. ACLASTA [Suspect]
     Indication: OSTEOPOROSIS
     Dosage: 5 mg
     Route: 042
     Dates: start: 20111128
  2. GLUCOCORTICOIDS [Concomitant]

REACTIONS (3)
  - Pruritus generalised [Recovering/Resolving]
  - Rash generalised [Recovering/Resolving]
  - Diabetes mellitus [Not Recovered/Not Resolved]
